FAERS Safety Report 21200137 (Version 1)
Quarter: 2022Q3

REPORT INFORMATION
  Report Type: Other
  Country: PL (occurrence: None)
  Receive Date: 20220811
  Receipt Date: 20220811
  Transmission Date: 20221027
  Serious: Yes (Other)
  Sender: FDA-Public Use
  Company Number: PL-Saptalis Pharmaceuticals,LLC-000294

PATIENT
  Age: 43 Year
  Sex: Male

DRUGS (1)
  1. TRIAMCINOLONE ACETONIDE [Suspect]
     Active Substance: TRIAMCINOLONE ACETONIDE
     Indication: Macular oedema
     Dosage: (4 MG/0.1 ML) EIGHT TA INTRAVITREAL INJECTIONS

REACTIONS (2)
  - Central serous chorioretinopathy [Recovered/Resolved]
  - Condition aggravated [Recovered/Resolved]
